FAERS Safety Report 9668058 (Version 2)
Quarter: 2015Q2

REPORT INFORMATION
  Report Type: Spontaneous
  Country: PL (occurrence: PL)
  Receive Date: 20131104
  Receipt Date: 20150513
  Transmission Date: 20150821
  Serious: Yes (Death, Other)
  Sender: FDA-Public Use
  Company Number: PHHY2013PL121330

PATIENT
  Age: 63 Year

DRUGS (2)
  1. OLANZAPINE. [Suspect]
     Active Substance: OLANZAPINE
     Dosage: 15 MG, PER DAY
     Route: 065
  2. OLANZAPINE. [Suspect]
     Active Substance: OLANZAPINE
     Indication: SCHIZOPHRENIA, PARANOID TYPE
     Dosage: 10 MG, PER DAY
     Route: 065

REACTIONS (11)
  - Muscle rigidity [Fatal]
  - Neuroleptic malignant syndrome [Fatal]
  - Hyperhidrosis [Fatal]
  - Leukocytosis [Fatal]
  - Loss of consciousness [Fatal]
  - Tachycardia [Fatal]
  - Blood creatine phosphokinase increased [Fatal]
  - Respiratory failure [Unknown]
  - Acute kidney injury [Fatal]
  - Hyperpyrexia [Fatal]
  - Blood pressure increased [Fatal]
